FAERS Safety Report 18736536 (Version 2)
Quarter: 2021Q3

REPORT INFORMATION
  Report Type: Spontaneous
  Country: US (occurrence: US)
  Receive Date: 20210113
  Receipt Date: 20210816
  Transmission Date: 20211014
  Serious: Yes (Other)
  Sender: FDA-Public Use
  Company Number: US-PURDUE-USA-2020-0185625

PATIENT
  Sex: Male

DRUGS (2)
  1. OXYFAST [Suspect]
     Active Substance: OXYCODONE
     Indication: PRODUCT USED FOR UNKNOWN INDICATION
     Dosage: UNKNOWN
     Route: 064
  2. OXYCONTIN [Suspect]
     Active Substance: OXYCODONE HYDROCHLORIDE
     Indication: PRODUCT USED FOR UNKNOWN INDICATION
     Route: 064

REACTIONS (5)
  - Learning disability [Unknown]
  - Drug dependence [Unknown]
  - Foetal exposure during pregnancy [Unknown]
  - Developmental delay [Unknown]
  - Drug withdrawal syndrome neonatal [Unknown]
